FAERS Safety Report 5673375-3 (Version None)
Quarter: 2008Q1

REPORT INFORMATION
  Report Type: 
  Country: None (occurrence: None)
  Receive Date: 20080319
  Receipt Date: 20080128
  Transmission Date: 20080703
  Serious: Yes (Death)
  Sender: FDA-Public Use
  Company Number: US-TYCO HEALTHCARE/MALLINCKRODT-T200800352

PATIENT

DRUGS (7)
  1. MORPHINE [Suspect]
     Route: 048
  2. AMITRIPTYLINE HYDROCHLORIDE W/PERPHENAZINE [Suspect]
     Route: 048
  3. VENLAFAXINE HCL [Suspect]
  4. PROPOXYPHENE HYDROCHLORIDE [Suspect]
  5. CLONAZEPAM [Suspect]
  6. L-DOPA [Suspect]
  7. ACETAMINOPHEN [Suspect]

REACTIONS (2)
  - CARDIO-RESPIRATORY ARREST [None]
  - COMPLETED SUICIDE [None]
